FAERS Safety Report 4462876-1 (Version None)
Quarter: 2004Q3

REPORT INFORMATION
  Report Type: 
  Country: None (occurrence: None)
  Receive Date: 20040927
  Receipt Date: 20040914
  Transmission Date: 20050211
  Serious: Yes (Hospitalization)
  Sender: FDA-Public Use
  Company Number: 2004233359FR

PATIENT
  Age: 3 Year
  Sex: Male

DRUGS (3)
  1. VANTIN [Suspect]
     Indication: EAR INFECTION
     Dosage: 104 MG, DAILY, ORAL
     Route: 048
     Dates: start: 20040416, end: 20040421
  2. MOTILIUM [Concomitant]
  3. CELESTONE [Concomitant]

REACTIONS (10)
  - BLOOD IMMUNOGLOBULIN E INCREASED [None]
  - EOSINOPHILIA [None]
  - LOOSE STOOLS [None]
  - NEUTROPHIL PERCENTAGE DECREASED [None]
  - NORMOCHROMIC NORMOCYTIC ANAEMIA [None]
  - OESOPHAGITIS [None]
  - PALLOR [None]
  - PLATELET COUNT INCREASED [None]
  - PRURITUS [None]
  - VOMITING [None]
